FAERS Safety Report 18709315 (Version 1)
Quarter: 2021Q1

REPORT INFORMATION
  Report Type: Spontaneous
  Country: US (occurrence: US)
  Receive Date: 20210107
  Receipt Date: 20210107
  Transmission Date: 20210419
  Serious: Yes (Death, Other)
  Sender: FDA-Public Use
  Company Number: US-ALKEM LABORATORIES LIMITED-US-ALKEM-2020-09339

PATIENT
  Sex: Male

DRUGS (1)
  1. LAMOTRIGINE. [Suspect]
     Active Substance: LAMOTRIGINE
     Indication: BIPOLAR DISORDER
     Dosage: UNK
     Route: 065

REACTIONS (5)
  - Multiple organ dysfunction syndrome [Fatal]
  - Disseminated intravascular coagulation [Unknown]
  - Stevens-Johnson syndrome [Recovering/Resolving]
  - Thrombosis [Fatal]
  - Blood creatinine increased [Unknown]
